FAERS Safety Report 10757748 (Version 1)
Quarter: 2015Q1

REPORT INFORMATION
  Report Type: Spontaneous
  Country: US (occurrence: None)
  Receive Date: 20150202
  Receipt Date: 20150202
  Transmission Date: 20150721
  Serious: Yes (Disabling)
  Sender: FDA-Public Use
  Company Number: None

PATIENT
  Age: 36 Year
  Sex: Female

DRUGS (1)
  1. ZONISAMIDE. [Suspect]
     Active Substance: ZONISAMIDE
     Dosage: 4 PILLS ONCE DAILY  TAKEN BY MOUTH
     Route: 048

REACTIONS (6)
  - Product quality issue [None]
  - Loss of employment [None]
  - Migraine [None]
  - Condition aggravated [None]
  - Product substitution issue [None]
  - Impaired work ability [None]
